APPROVED DRUG PRODUCT: DECADRON-LA
Active Ingredient: DEXAMETHASONE ACETATE
Strength: EQ 8MG BASE/ML **Federal Register determination that product was not discontinued or withdrawn for safety or effectiveness reasons**
Dosage Form/Route: INJECTABLE;INJECTION
Application: N016675 | Product #001
Applicant: MERCK RESEARCH LABORATORIES DIV MERCK CO INC
Approved: Approved Prior to Jan 1, 1982 | RLD: Yes | RS: No | Type: DISCN